FAERS Safety Report 5688318-6 (Version None)
Quarter: 2008Q1

REPORT INFORMATION
  Report Type: 
  Country: None (occurrence: None)
  Receive Date: 20080328
  Receipt Date: 20080328
  Transmission Date: 20080703
  Serious: Yes (Hospitalization)
  Sender: FDA-Public Use
  Company Number: None

PATIENT
  Sex: Male
  Weight: 88.2 kg

DRUGS (3)
  1. ENDOTOXIN (E.COLI 0:113) [Suspect]
     Dosage: 353 NANOGRAM X1 ROUTE=ENDOTRACHEAL
     Route: 007
     Dates: start: 20080312
  2. AMOXICILLIN [Concomitant]
  3. LACTOSE [Concomitant]

REACTIONS (1)
  - PULMONARY FUNCTION TEST DECREASED [None]
